FAERS Safety Report 19068658 (Version 1)
Quarter: 2021Q1

REPORT INFORMATION
  Report Type: Spontaneous
  Country: US (occurrence: US)
  Receive Date: 20210328
  Receipt Date: 20210328
  Transmission Date: 20210420
  Serious: Yes (Other)
  Sender: FDA-Public Use
  Company Number: None

PATIENT
  Age: 59 Year
  Sex: Female
  Weight: 65.25 kg

DRUGS (20)
  1. PREDNISONE. [Concomitant]
     Active Substance: PREDNISONE
  2. COLLAGEN PEPTIDES [Concomitant]
  3. CALCIUM [Concomitant]
     Active Substance: CALCIUM
  4. METHYL FOLATE [Concomitant]
     Active Substance: LEVOMEFOLATE CALCIUM
  5. IRON [Concomitant]
     Active Substance: IRON
  6. OMEGA 3 [Concomitant]
     Active Substance: OMEGA-3 FATTY ACIDS
  7. MAGNESIUM CITRATE. [Concomitant]
     Active Substance: MAGNESIUM CITRATE
  8. BUPROPION HCL [Suspect]
     Active Substance: BUPROPION HYDROCHLORIDE
     Indication: DEPRESSION
     Dosage: ?          QUANTITY:1 TABLET(S);?
     Route: 048
     Dates: start: 20210215, end: 20210216
  9. METHYLPHENIDATE. [Concomitant]
     Active Substance: METHYLPHENIDATE
  10. K1 [Concomitant]
  11. SYNTHROID [Concomitant]
     Active Substance: LEVOTHYROXINE SODIUM
  12. PROMETRIUM [Concomitant]
     Active Substance: PROGESTERONE
  13. VITAMIN D3 [Concomitant]
     Active Substance: CHOLECALCIFEROL
  14. L?LYSINE [Concomitant]
     Active Substance: LYSINE
  15. WELLBUTRIN SR [Suspect]
     Active Substance: BUPROPION HYDROCHLORIDE
     Indication: DEPRESSION
     Dosage: ?          QUANTITY:1 TABLET(S);?
     Route: 048
     Dates: start: 20210313, end: 20210314
  16. LAMOTRIGINE. [Concomitant]
     Active Substance: LAMOTRIGINE
  17. LORAZEPAM. [Concomitant]
     Active Substance: LORAZEPAM
  18. ESTROGEL [Concomitant]
     Active Substance: ESTRADIOL
  19. K2 [Concomitant]
     Active Substance: JWH-018
  20. COD LIVER OIL [Concomitant]
     Active Substance: COD LIVER OIL

REACTIONS (10)
  - Urticaria [None]
  - Swelling of eyelid [None]
  - Burning sensation [None]
  - Skin exfoliation [None]
  - Erythema [None]
  - Lip swelling [None]
  - Chapped lips [None]
  - Pruritus [None]
  - Skin warm [None]
  - Paraesthesia [None]

NARRATIVE: CASE EVENT DATE: 20210313
